FAERS Safety Report 16566804 (Version 1)
Quarter: 2019Q3

REPORT INFORMATION
  Report Type: Spontaneous
  Country: US (occurrence: US)
  Receive Date: 20190712
  Receipt Date: 20190712
  Transmission Date: 20191004
  Serious: Yes (Death)
  Sender: FDA-Public Use
  Company Number: US-HAEMONETICS CORP-2070724

PATIENT
  Age: 25 Year
  Sex: Male
  Weight: 144.09 kg

DRUGS (2)
  1. HAEMONETICS ANTICOAGULANT SODIUM CITRATE [Suspect]
     Active Substance: TRISODIUM CITRATE DIHYDRATE
     Route: 042
     Dates: start: 20190514, end: 20190514
  2. HAEMONETICS ANTICOAGULANT SODIUM CITRATE [Suspect]
     Active Substance: TRISODIUM CITRATE DIHYDRATE
     Indication: ANTICOAGULANT THERAPY
     Route: 042
     Dates: start: 20190514, end: 20190514

REACTIONS (1)
  - Death [Fatal]

NARRATIVE: CASE EVENT DATE: 20190514
